FAERS Safety Report 22821137 (Version 4)
Quarter: 2023Q4

REPORT INFORMATION
  Report Type: Spontaneous
  Country: IT (occurrence: IT)
  Receive Date: 20230814
  Receipt Date: 20231009
  Transmission Date: 20240110
  Serious: Yes (Hospitalization, Other)
  Sender: FDA-Public Use
  Company Number: IT-JNJFOC-20230819433

PATIENT
  Age: 14 Year
  Sex: Male

DRUGS (8)
  1. REMICADE [Suspect]
     Active Substance: INFLIXIMAB
     Indication: Colitis ulcerative
     Dosage: UNK
     Route: 042
  2. ADALIMUMAB [Suspect]
     Active Substance: ADALIMUMAB
     Indication: Colitis ulcerative
     Route: 065
  3. ADALIMUMAB [Suspect]
     Active Substance: ADALIMUMAB
     Route: 065
  4. VEDOLIZUMAB [Suspect]
     Active Substance: VEDOLIZUMAB
     Indication: Colitis ulcerative
     Dosage: UNK
     Route: 065
  5. MESALAMINE [Concomitant]
     Active Substance: MESALAMINE
     Indication: Colitis ulcerative
     Dosage: ORAL AND TOPICAL
     Route: 061
  6. MESALAMINE [Concomitant]
     Active Substance: MESALAMINE
     Dosage: ORAL AND TOPICAL
     Route: 061
  7. AZATHIOPRINE [Concomitant]
     Active Substance: AZATHIOPRINE
     Indication: Colitis ulcerative
  8. AZATHIOPRINE SODIUM [Concomitant]
     Active Substance: AZATHIOPRINE SODIUM
     Indication: Colitis ulcerative
     Route: 065

REACTIONS (11)
  - Infusion related hypersensitivity reaction [Recovered/Resolved]
  - Myalgia [Unknown]
  - Colitis [Unknown]
  - Inflammatory marker increased [Unknown]
  - Arthralgia [Unknown]
  - Type IV hypersensitivity reaction [Unknown]
  - Pyrexia [Unknown]
  - Fatigue [Unknown]
  - Headache [Unknown]
  - Inflammatory marker increased [Unknown]
  - Drug ineffective [Unknown]
